FAERS Safety Report 16337127 (Version 10)
Quarter: 2023Q4

REPORT INFORMATION
  Report Type: Spontaneous
  Country: US (occurrence: US)
  Receive Date: 20190521
  Receipt Date: 20231115
  Transmission Date: 20240109
  Serious: No
  Sender: FDA-Public Use
  Company Number: US-PFIZER INC-2019209722

PATIENT
  Age: 63 Year
  Sex: Female
  Weight: 96.145 kg

DRUGS (9)
  1. BOSULIF [Suspect]
     Active Substance: BOSUTINIB MONOHYDRATE
     Indication: Chronic myeloid leukaemia
     Dosage: 300 MG, UNK
  2. BOSULIF [Suspect]
     Active Substance: BOSUTINIB MONOHYDRATE
     Dosage: 200 MG, DAILY
     Route: 048
     Dates: start: 20190315
  3. BOSULIF [Suspect]
     Active Substance: BOSUTINIB MONOHYDRATE
     Dosage: 400 MG, UNK
  4. BOSULIF [Suspect]
     Active Substance: BOSUTINIB MONOHYDRATE
     Dosage: 200 MG, DAILY
     Route: 048
  5. BOSULIF [Suspect]
     Active Substance: BOSUTINIB MONOHYDRATE
     Dosage: 100 MG, UNK
  6. BOSULIF [Suspect]
     Active Substance: BOSUTINIB MONOHYDRATE
     Dosage: 200 MG, 1X/DAY
     Route: 048
     Dates: start: 201903
  7. BOSULIF [Suspect]
     Active Substance: BOSUTINIB MONOHYDRATE
     Dosage: 200 MG, DAILY (TAKE 2 TABLETS (200 MG) BY MOUTH DAILY)
     Route: 048
  8. BOSULIF [Suspect]
     Active Substance: BOSUTINIB MONOHYDRATE
     Dosage: 100 MG
  9. METOPROLOL TARTRATE [Concomitant]
     Active Substance: METOPROLOL TARTRATE
     Indication: Arrhythmia
     Dosage: 50 MG, 2X/DAY
     Dates: start: 201604

REACTIONS (4)
  - Peripheral swelling [Not Recovered/Not Resolved]
  - Cardiac disorder [Recovered/Resolved]
  - Fatigue [Recovered/Resolved]
  - Illness [Unknown]

NARRATIVE: CASE EVENT DATE: 20190301
